FAERS Safety Report 4694603-7 (Version None)
Quarter: 2005Q2

REPORT INFORMATION
  Report Type: 
  Country: None (occurrence: None)
  Receive Date: 20050617
  Receipt Date: 20050614
  Transmission Date: 20051028
  Serious: Yes (Death, Hospitalization)
  Sender: FDA-Public Use
  Company Number: HQWYE915307JUL04

PATIENT
  Age: 63 Year
  Sex: Female

DRUGS (6)
  1. GEMTUZUMAB OZOGAMICIN [Suspect]
     Indication: DRUG USE FOR UNKNOWN INDICATION
     Dosage: 10 MG 1X PER 1 DAY,
     Dates: start: 20040430, end: 20040430
  2. ACYCLOVIR [Suspect]
     Indication: DRUG USE FOR UNKNOWN INDICATION
     Dates: start: 20040517, end: 20040518
  3. CYTARABINE [Suspect]
     Indication: DRUG USE FOR UNKNOWN INDICATION
     Dosage: 1900 MG 1X PER 1 DAY
     Dates: start: 20040424, end: 20040503
  4. IDARUBICIN HCL [Suspect]
     Indication: DRUG USE FOR UNKNOWN INDICATION
     Dosage: DAY 3 AND 5, TOTAL DOSE 66MG
     Dates: start: 20040426, end: 20040430
  5. VANCOMYCIN [Concomitant]
  6. CEFTAZIDIME SODIUM [Concomitant]

REACTIONS (4)
  - ARRHYTHMIA [None]
  - CARDIAC ARREST [None]
  - DIARRHOEA [None]
  - HYPOKALAEMIA [None]
